FAERS Safety Report 12936716 (Version 2)
Quarter: 2019Q3

REPORT INFORMATION
  Report Type: Spontaneous
  Country: FR (occurrence: FR)
  Receive Date: 20161114
  Receipt Date: 20190913
  Transmission Date: 20191004
  Serious: Yes (Hospitalization)
  Sender: FDA-Public Use
  Company Number: FR-ASTRAZENECA-2016SF17688

PATIENT
  Age: 56 Year
  Sex: Male
  Weight: 75 kg

DRUGS (9)
  1. DAFALGAN CODEINE [Concomitant]
     Active Substance: ACETAMINOPHEN\CODEINE PHOSPHATE
  2. BUDENOSIDE [Concomitant]
     Active Substance: BUDESONIDE
  3. MELOXICAM. [Suspect]
     Active Substance: MELOXICAM
     Route: 048
  4. METHOTREXATE. [Concomitant]
     Active Substance: METHOTREXATE
     Dates: start: 2012
  5. GAVISCON [Concomitant]
     Active Substance: ALUMINUM HYDROXIDE\MAGNESIUM CARBONATE
  6. INEXIUM [Suspect]
     Active Substance: ESOMEPRAZOLE
     Indication: SCLERODERMA
     Route: 048
     Dates: end: 20160721
  7. TRACLEER [Concomitant]
     Active Substance: BOSENTAN
  8. ADALATE [Suspect]
     Active Substance: NIFEDIPINE
     Indication: RAYNAUD^S PHENOMENON
     Route: 048
     Dates: start: 20160530, end: 20160718
  9. SPECIAFOLDINE [Concomitant]
     Active Substance: FOLIC ACID
     Dates: start: 2012

REACTIONS (1)
  - Drug reaction with eosinophilia and systemic symptoms [Recovering/Resolving]

NARRATIVE: CASE EVENT DATE: 20160720
